FAERS Safety Report 4333974-8 (Version None)
Quarter: 2004Q2

REPORT INFORMATION
  Report Type: 
  Country: None (occurrence: None)
  Receive Date: 20040402
  Receipt Date: 20040323
  Transmission Date: 20050107
  Serious: Yes (Hospitalization)
  Sender: FDA-Public Use
  Company Number: 2003033768

PATIENT
  Age: 80 Year
  Sex: Male
  Weight: 94 kg

DRUGS (5)
  1. LITHIUM CARBONATE [Suspect]
     Indication: ILL-DEFINED DISORDER
     Dosage: ORAL
     Route: 048
     Dates: start: 19960101
  2. GLYBURIDE [Suspect]
     Indication: DIABETES MELLITUS
     Dosage: ORAL
     Route: 048
     Dates: start: 19990101
  3. METFORMIN HYDROCHLORIDE [Concomitant]
  4. DIPYRIDAMOLE [Concomitant]
  5. FUROSEMIDE [Concomitant]

REACTIONS (9)
  - BIPOLAR I DISORDER [None]
  - BLOOD CALCIUM INCREASED [None]
  - BLOOD CREATINE INCREASED [None]
  - CONFUSIONAL STATE [None]
  - HYPERGLYCAEMIA [None]
  - HYPOGLYCAEMIA [None]
  - NON-HODGKIN'S LYMPHOMA [None]
  - OVERDOSE [None]
  - THERAPEUTIC AGENT TOXICITY [None]
